FAERS Safety Report 7379631-5 (Version None)
Quarter: 2011Q1

REPORT INFORMATION
  Report Type: 
  Country: None (occurrence: None)
  Receive Date: 20110318
  Receipt Date: 20110307
  Transmission Date: 20110831
  Serious: Yes (Hospitalization)
  Sender: FDA-Public Use
  Company Number: 015880

PATIENT
  Age: 69 Year
  Sex: Female

DRUGS (4)
  1. HYDRALAZINE HCL [Concomitant]
  2. FERROUS SULFATE TAB [Concomitant]
  3. ESOMEPRAZOLE (ESOMEPRAZOLE) [Concomitant]
  4. VERAPAMIL HCL [Suspect]
     Dosage: 120 MG, ONCE/DAY

REACTIONS (9)
  - BLOOD CREATININE INCREASED [None]
  - ATRIOVENTRICULAR BLOCK COMPLETE [None]
  - TOXICITY TO VARIOUS AGENTS [None]
  - HYPOTENSION [None]
  - PRESYNCOPE [None]
  - CONFUSIONAL STATE [None]
  - DRUG LEVEL INCREASED [None]
  - RENAL IMPAIRMENT [None]
  - ASTHENIA [None]
